FAERS Safety Report 8093129-0 (Version None)
Quarter: 2012Q1

REPORT INFORMATION
  Report Type: 
  Country: None (occurrence: None)
  Receive Date: 20120128
  Receipt Date: 20111019
  Transmission Date: 20120608
  Serious: No
  Sender: FDA-Public Use
  Company Number: US-ABBOTT-11P-163-0843065-00

PATIENT
  Sex: Male

DRUGS (10)
  1. HUMIRA [Suspect]
     Indication: RHEUMATOID ARTHRITIS
     Route: 058
     Dates: start: 20110722, end: 20111001
  2. NORVASC [Concomitant]
     Indication: HYPERTENSION
  3. ADVAIR DISKUS 100/50 [Concomitant]
     Indication: ASTHMA
  4. ASPIRIN [Concomitant]
     Indication: ANTICOAGULANT THERAPY
  5. CELEXA [Concomitant]
     Indication: PRODUCT USED FOR UNKNOWN INDICATION
  6. ATENOLOL [Concomitant]
     Indication: HYPERTENSION
  7. NEXIUM [Concomitant]
     Indication: PRODUCT USED FOR UNKNOWN INDICATION
  8. ZOCOR [Concomitant]
     Indication: BLOOD CHOLESTEROL INCREASED
  9. MOBIC [Concomitant]
     Indication: RHEUMATOID ARTHRITIS
  10. CELEBREX [Concomitant]
     Indication: PRODUCT USED FOR UNKNOWN INDICATION

REACTIONS (5)
  - RHINORRHOEA [None]
  - PARANASAL SINUS HYPERSECRETION [None]
  - HEADACHE [None]
  - NASAL CONGESTION [None]
  - DRUG INEFFECTIVE [None]
